FAERS Safety Report 10257216 (Version 1)
Quarter: 2020Q3

REPORT INFORMATION
  Report Type: Spontaneous
  Country: IT (occurrence: None)
  Receive Date: 20140620
  Receipt Date: 20140620
  Transmission Date: 20201104
  Serious: Yes (Other)
  Sender: FDA-Public Use
  Company Number: 2014IT00546

PATIENT

DRUGS (2)
  1. GEMCITABINE (GEMCITABINE) INJECTION [Suspect]
     Active Substance: GEMCITABINE HYDROCHLORIDE
     Indication: PANCREATIC CARCINOMA METASTATIC
     Dosage: 1000 MG/M2 ON DAYS, 1, 8, AND 15 OF EACH 28?DAY CYCLES
  2. TREMELIMUMAB. [Suspect]
     Active Substance: TREMELIMUMAB
     Indication: PANCREATIC CARCINOMA METASTATIC
     Dosage: (6,10, OR 15MG/KG) ON DAY 1 OF EACH 84?DAY CYCLE FOR A MAXIMUM OF 4 CYCLES, INTRAVENOUS
     Route: 042

REACTIONS (2)
  - Diarrhoea [None]
  - Dehydration [None]
